FAERS Safety Report 9026836 (Version 4)
Quarter: 2013Q1

REPORT INFORMATION
  Report Type: Spontaneous
  Country: DE (occurrence: DE)
  Receive Date: 20130123
  Receipt Date: 20130311
  Transmission Date: 20140127
  Serious: Yes (Other)
  Sender: FDA-Public Use
  Company Number: DE-PFIZER INC-2013027643

PATIENT
  Age: 69 Year
  Sex: Male
  Weight: 105 kg

DRUGS (6)
  1. NORVASC [Suspect]
     Indication: HYPERTENSION
     Dosage: 5 MG, 1X/DAY
     Route: 048
  2. ATACAND [Suspect]
     Indication: HYPERTENSION
     Dosage: 16 MG, 2X/DAY
     Route: 048
     Dates: end: 20130131
  3. ATACAND [Suspect]
     Dosage: 16 MG, 1X/DAY
     Route: 048
     Dates: start: 20130201
  4. CIPRAMIL [Suspect]
     Indication: PANIC ATTACK
     Dosage: 20 MG, 1X/DAY
     Route: 048
     Dates: start: 200706, end: 20130201
  5. CIPRAMIL [Suspect]
     Dosage: 2.5 MG, 1X/DAY
     Route: 048
     Dates: start: 20130202
  6. STILNOX [Concomitant]
     Indication: INSOMNIA
     Dosage: 10 MG, UNK
     Route: 048

REACTIONS (1)
  - Inappropriate antidiuretic hormone secretion [Recovering/Resolving]
